FAERS Safety Report 8196976-X (Version None)
Quarter: 2012Q1

REPORT INFORMATION
  Report Type: 
  Country: None (occurrence: None)
  Receive Date: 20120227
  Receipt Date: 20111028
  Transmission Date: 20120608
  Serious: Yes (Hospitalization)
  Sender: FDA-Public Use
  Company Number: 335891

PATIENT
  Age: 57 Year
  Sex: Male
  Weight: 120.6 kg

DRUGS (10)
  1. ACTOS [Concomitant]
  2. VIAGRA [Concomitant]
  3. AMARYL [Concomitant]
  4. VICTOZA [Suspect]
     Indication: TYPE 2 DIABETES MELLITUS
     Dosage: 0.6 MG, QD, SUBCUTANEOUS
     Route: 058
     Dates: start: 20110321, end: 20110903
  5. TENORETIC 100 [Concomitant]
  6. ALLOPURINOL [Concomitant]
  7. METFORMIN HCL [Concomitant]
  8. METFORMIN HCL [Concomitant]
  9. COLCHICINE [Concomitant]
  10. LANTUS [Concomitant]

REACTIONS (1)
  - PANCREATITIS ACUTE [None]
